FAERS Safety Report 8828466 (Version 4)
Quarter: 2013Q3

REPORT INFORMATION
  Report Type: Spontaneous
  Country: JP (occurrence: JP)
  Receive Date: 20121005
  Receipt Date: 20130829
  Transmission Date: 20140515
  Serious: Yes (Life-Threatening, Hospitalization)
  Sender: FDA-Public Use
  Company Number: JP-ELI_LILLY_AND_COMPANY-JP201210000720

PATIENT
  Age: 78 Year
  Sex: Male
  Weight: 47.6 kg

DRUGS (2)
  1. ALIMTA [Suspect]
     Indication: LUNG ADENOCARCINOMA STAGE IV
     Dosage: 760 MG, UNK
     Route: 042
     Dates: start: 20120731, end: 20120821
  2. TARCEVA [Suspect]
     Indication: LUNG ADENOCARCINOMA STAGE IV
     Dosage: 150 MG, UNK
     Route: 048
     Dates: start: 20120731, end: 20120827

REACTIONS (4)
  - Thrombotic thrombocytopenic purpura [Recovered/Resolved]
  - Haemolytic uraemic syndrome [Recovered/Resolved]
  - Febrile neutropenia [Recovered/Resolved]
  - Diarrhoea [Recovered/Resolved]
